FAERS Safety Report 11849410 (Version 1)
Quarter: 2015Q4

REPORT INFORMATION
  Report Type: Spontaneous
  Country: GB (occurrence: GB)
  Receive Date: 20151218
  Receipt Date: 20151218
  Transmission Date: 20160305
  Serious: Yes (Death, Hospitalization)
  Sender: FDA-Public Use
  Company Number: GB-TARO PHARMACEUTICALS UK LTD-2015SUN02289

PATIENT
  Age: 56 Year
  Sex: Female

DRUGS (3)
  1. HYDROCORTISONE. [Concomitant]
     Active Substance: HYDROCORTISONE
     Indication: CELLULITIS
     Route: 048
  2. WARFARIN [Suspect]
     Active Substance: WARFARIN
     Indication: PRODUCT USED FOR UNKNOWN INDICATION
     Dosage: UNK
     Route: 065
  3. PENICILLIN V [Concomitant]
     Active Substance: PENICILLIN V
     Indication: CELLULITIS

REACTIONS (9)
  - Sepsis [Fatal]
  - Calciphylaxis [Fatal]
  - Cellulitis [None]
  - Normochromic normocytic anaemia [None]
  - Mobility decreased [None]
  - Septic shock [None]
  - Wound infection pseudomonas [None]
  - Hypoalbuminaemia [None]
  - Atrial fibrillation [None]
